FAERS Safety Report 16524331 (Version 5)
Quarter: 2019Q4

REPORT INFORMATION
  Report Type: Spontaneous
  Country: US (occurrence: US)
  Receive Date: 20190702
  Receipt Date: 20191004
  Transmission Date: 20200122
  Serious: No
  Sender: FDA-Public Use
  Company Number: US-ACTELION-A-US2019-191607

PATIENT
  Age: 73 Year
  Sex: Female
  Weight: 54.88 kg

DRUGS (3)
  1. OPSUMIT [Suspect]
     Active Substance: MACITENTAN
     Indication: PULMONARY ARTERIAL HYPERTENSION
     Dosage: 10 MG, QD
     Route: 048
     Dates: start: 20190528
  2. DEXILANT [Concomitant]
     Active Substance: DEXLANSOPRAZOLE
  3. ARMOUR THYROID [Concomitant]
     Active Substance: THYROID, PORCINE

REACTIONS (17)
  - Constipation [Unknown]
  - Diarrhoea [Unknown]
  - Unevaluable event [Not Recovered/Not Resolved]
  - Blood electrolytes abnormal [Not Recovered/Not Resolved]
  - Headache [Unknown]
  - Abdominal distension [Unknown]
  - Nasal congestion [Not Recovered/Not Resolved]
  - Dizziness [Not Recovered/Not Resolved]
  - Faecaloma [Unknown]
  - Infection [Unknown]
  - Urinary tract infection [Unknown]
  - Dehydration [Not Recovered/Not Resolved]
  - Immune system disorder [Unknown]
  - Osteoporosis [Unknown]
  - Condition aggravated [Not Recovered/Not Resolved]
  - Pollakiuria [Not Recovered/Not Resolved]
  - Irritable bowel syndrome [Unknown]

NARRATIVE: CASE EVENT DATE: 20190528
